FAERS Safety Report 6287104-6 (Version None)
Quarter: 2009Q3

REPORT INFORMATION
  Report Type: 
  Country: None (occurrence: None)
  Receive Date: 20090728
  Receipt Date: 20090715
  Transmission Date: 20100115
  Serious: Yes (Other)
  Sender: FDA-Public Use
  Company Number: US-PFIZER INC-2009246169

PATIENT
  Sex: Female

DRUGS (2)
  1. XANAX [Suspect]
  2. ZYPREXA [Suspect]
     Dosage: 20 MG

REACTIONS (1)
  - ROAD TRAFFIC ACCIDENT [None]
